FAERS Safety Report 25274650 (Version 1)
Quarter: 2025Q2

REPORT INFORMATION
  Report Type: Spontaneous
  Country: US (occurrence: None)
  Receive Date: 20250506
  Receipt Date: 20250506
  Transmission Date: 20250716
  Serious: Yes (unspecified)
  Sender: FDA-CTU
  Company Number: None

PATIENT
  Age: 60 Year
  Sex: Female

DRUGS (3)
  1. DIFICID [Suspect]
     Active Substance: FIDAXOMICIN
     Indication: Clostridium difficile infection
     Dosage: OTHER QUANTITY : 1 TABLET(S);?FREQUENCY : TWICE A DAY;?
     Route: 048
     Dates: start: 20250411, end: 20250414
  2. Vancomycin FOR C-DIFF infection, ACTIVE [Concomitant]
  3. PEPCID [Concomitant]
     Active Substance: FAMOTIDINE

REACTIONS (4)
  - Drug hypersensitivity [None]
  - Chest discomfort [None]
  - Pigmentation disorder [None]
  - Reaction to excipient [None]

NARRATIVE: CASE EVENT DATE: 20250411
